FAERS Safety Report 7298416-1 (Version None)
Quarter: 2011Q1

REPORT INFORMATION
  Report Type: 
  Country: None (occurrence: None)
  Receive Date: 20110217
  Receipt Date: 20110210
  Transmission Date: 20110831
  Serious: Yes (Life-Threatening, Hospitalization)
  Sender: FDA-Public Use
  Company Number: SE-JNJFOC-20110203377

PATIENT
  Age: 57 Year
  Sex: Male

DRUGS (15)
  1. REMICADE [Suspect]
     Route: 042
  2. PREDNISOLONE [Concomitant]
  3. REMICADE [Suspect]
     Route: 042
  4. COX-1 ANTAGONIST [Concomitant]
  5. REMICADE [Suspect]
     Indication: POLYARTHRITIS
     Route: 042
  6. COX-1 ANTAGONIST [Concomitant]
  7. COX-1 ANTAGONIST [Concomitant]
  8. COX-1 ANTAGONIST [Concomitant]
  9. COX-1 ANTAGONIST [Concomitant]
  10. COX-1 ANTAGONIST [Concomitant]
  11. COX-1 ANTAGONIST [Concomitant]
  12. METHOTREXATE [Concomitant]
  13. COX-1 ANTAGONIST [Concomitant]
  14. REMICADE [Suspect]
     Indication: PSORIATIC ARTHROPATHY
     Route: 042
  15. COX-1 ANTAGONIST [Concomitant]

REACTIONS (1)
  - MYOCARDIAL INFARCTION [None]
